FAERS Safety Report 14003358 (Version 2)
Quarter: 2017Q4

REPORT INFORMATION
  Report Type: Report from Study
  Country: US (occurrence: US)
  Receive Date: 20170922
  Receipt Date: 20171024
  Transmission Date: 20180321
  Serious: Yes (Hospitalization)
  Sender: FDA-Public Use
  Company Number: US-ACTELION-A-US2017-154190

PATIENT
  Age: 40 Year
  Sex: Female
  Weight: 60.77 kg

DRUGS (4)
  1. REMODULIN [Suspect]
     Active Substance: TREPROSTINIL
     Indication: PRODUCT USED FOR UNKNOWN INDICATION
     Dosage: UNK
     Route: 065
  2. OPSUMIT [Suspect]
     Active Substance: MACITENTAN
     Indication: PULMONARY HYPERTENSION
     Dosage: 10 MG, QD
     Route: 048
     Dates: start: 2013
  3. ADEMPAS [Concomitant]
     Active Substance: RIOCIGUAT
  4. REVATIO [Concomitant]
     Active Substance: SILDENAFIL CITRATE

REACTIONS (10)
  - Catheter site pruritus [Unknown]
  - Pain [Unknown]
  - Syncope [Unknown]
  - Nausea [Unknown]
  - Migraine [Unknown]
  - Peripheral swelling [Unknown]
  - Therapy non-responder [Unknown]
  - Dizziness [Unknown]
  - Drug dose omission [Unknown]
  - Headache [Unknown]
